FAERS Safety Report 23101041 (Version 1)
Quarter: 2023Q4

REPORT INFORMATION
  Report Type: Spontaneous
  Country: US (occurrence: None)
  Receive Date: 20231021
  Receipt Date: 20231021
  Transmission Date: 20240110
  Serious: Yes (Hospitalization)
  Sender: FDA-Public Use
  Company Number: None

PATIENT
  Age: 62 Year
  Sex: Female

DRUGS (1)
  1. TRAZODONE HCL [Suspect]
     Active Substance: TRAZODONE HYDROCHLORIDE
     Dates: start: 20230216

REACTIONS (3)
  - Anxiety [None]
  - Suicidal ideation [None]
  - Suicide attempt [None]

NARRATIVE: CASE EVENT DATE: 20230315
